FAERS Safety Report 24710278 (Version 1)
Quarter: 2024Q4

REPORT INFORMATION
  Report Type: Report from Study
  Country: ES (occurrence: ES)
  Receive Date: 20241209
  Receipt Date: 20241209
  Transmission Date: 20250115
  Serious: Yes (Life-Threatening, Other)
  Sender: TAKEDA
  Company Number: ES-TAKEDA-2023TUS085820

PATIENT
  Sex: Female

DRUGS (12)
  1. TEDUGLUTIDE [Suspect]
     Active Substance: TEDUGLUTIDE
     Indication: Short-bowel syndrome
     Dosage: 2.4 MILLIGRAM, QD
     Dates: start: 20201105
  2. TEDUGLUTIDE [Suspect]
     Active Substance: TEDUGLUTIDE
  3. TEDUGLUTIDE [Suspect]
     Active Substance: TEDUGLUTIDE
  4. TEDUGLUTIDE [Suspect]
     Active Substance: TEDUGLUTIDE
  5. ACETAMINOPHEN [Concomitant]
     Active Substance: ACETAMINOPHEN
     Indication: COVID-19
     Dosage: 1 DOSAGE FORM
     Dates: start: 20220321, end: 20220607
  6. DUOFEMME [Concomitant]
     Indication: Premenstrual syndrome
     Dosage: 1 DOSAGE FORM, QD
     Dates: start: 20220726
  7. TRISEQUENS [Concomitant]
     Active Substance: ESTRADIOL\NORETHINDRONE ACETATE
     Indication: Premenstrual syndrome
     Dosage: 1 DOSAGE FORM, QD
     Dates: start: 20220719, end: 20220721
  8. MICALDEOS [Concomitant]
     Indication: Prophylaxis
     Dosage: 1 DOSAGE FORM, QD
     Dates: start: 20211213
  9. RAMIPRIL [Concomitant]
     Active Substance: RAMIPRIL
     Indication: Ventricular dysfunction
     Dosage: 2.5 MILLIGRAM, QD
     Dates: start: 20231116
  10. BISOPROLOL [Concomitant]
     Active Substance: BISOPROLOL
     Indication: Ventricular dysfunction
     Dosage: 1.25 MILLIGRAM, QD
     Dates: start: 20230921, end: 20231116
  11. BISOPROLOL [Concomitant]
     Active Substance: BISOPROLOL
     Dosage: 2.5 MILLIGRAM, QD
     Dates: start: 20231116
  12. ENALAPRIL [Concomitant]
     Active Substance: ENALAPRIL
     Indication: Ventricular dysfunction
     Dosage: 2.5 MILLIGRAM, BID
     Dates: start: 20230921, end: 20231116

REACTIONS (3)
  - Cardiomyopathy [Not Recovered/Not Resolved]
  - Chest pain [Recovered/Resolved]
  - Dyspnoea [Not Recovered/Not Resolved]

NARRATIVE: CASE EVENT DATE: 20230101
